FAERS Safety Report 5519095-7 (Version None)
Quarter: 2007Q4

REPORT INFORMATION
  Report Type: 
  Country: None (occurrence: None)
  Receive Date: 20071114
  Receipt Date: 20071031
  Transmission Date: 20080405
  Serious: Yes (Disabling, Other)
  Sender: FDA-Public Use
  Company Number: PHRM2007FR02526

PATIENT
  Age: 84 Year
  Sex: Female
  Weight: 50.0318 kg

DRUGS (1)
  1. VISUDYNE [Suspect]
     Dosage: 4.2 ML DAILY IV
     Route: 042
     Dates: start: 20060329, end: 20060329

REACTIONS (2)
  - BLINDNESS TRANSIENT [None]
  - TRANSIENT ISCHAEMIC ATTACK [None]
